FAERS Safety Report 4491653-0 (Version None)
Quarter: 2004Q4

REPORT INFORMATION
  Report Type: 
  Country: None (occurrence: None)
  Receive Date: 20041101
  Receipt Date: 20041021
  Transmission Date: 20050328
  Serious: Yes (Other)
  Sender: FDA-Public Use
  Company Number: HQWYE123927OCT04

PATIENT
  Age: 17 Month
  Sex: Male
  Weight: 10.9 kg

DRUGS (1)
  1. CHILDREN'S ADVIL [Suspect]
     Indication: PYREXIA
     Dosage: LESS THAN 1 TEASPOON, TAKEN ONE TIME, ORAL
     Route: 048

REACTIONS (3)
  - CONDITION AGGRAVATED [None]
  - FEBRILE CONVULSION [None]
  - LIVER FUNCTION TEST ABNORMAL [None]
